FAERS Safety Report 8384533-1 (Version None)
Quarter: 2012Q2

REPORT INFORMATION
  Report Type: 
  Country: None (occurrence: None)
  Receive Date: 20120524
  Receipt Date: 20120517
  Transmission Date: 20120825
  Serious: Yes (Hospitalization, Other)
  Sender: FDA-Public Use
  Company Number: JP-ABBOTT-12P-087-0903161-00

PATIENT
  Sex: Female
  Weight: 44 kg

DRUGS (12)
  1. LOXOPROFEN SODIUM HYDRATE [Concomitant]
     Indication: RHEUMATOID ARTHRITIS
     Dosage: Q.S.
     Route: 062
     Dates: start: 20070621
  2. TACROLIMUS [Concomitant]
     Route: 048
     Dates: start: 20101110
  3. HUMIRA [Suspect]
     Indication: RHEUMATOID ARTHRITIS
     Route: 058
     Dates: start: 20100705, end: 20120201
  4. ZOPICLONE [Concomitant]
     Indication: INSOMNIA
     Route: 048
     Dates: start: 20100428, end: 20100928
  5. SULFAMETHOXAZOLE + TRIMETHOPRIM [Concomitant]
     Indication: PROPHYLAXIS
     Route: 048
     Dates: start: 20100204
  6. TACROLIMUS [Concomitant]
     Route: 048
     Dates: start: 20101013, end: 20101109
  7. FLUNITRAZEPAM [Concomitant]
     Indication: INSOMNIA
     Dates: start: 20100929
  8. TACROLIMUS [Concomitant]
     Indication: RHEUMATOID ARTHRITIS
     Route: 048
     Dates: start: 20100415, end: 20100506
  9. URSODIOL [Concomitant]
     Indication: HEPATITIS C
     Route: 048
     Dates: start: 20070806
  10. TACROLIMUS [Concomitant]
     Route: 048
     Dates: start: 20100507, end: 20100928
  11. REBAMIPIDE [Concomitant]
     Indication: PROPHYLAXIS
     Route: 048
     Dates: start: 20050101
  12. TACROLIMUS [Concomitant]
     Route: 048
     Dates: start: 20100929, end: 20101012

REACTIONS (3)
  - APHASIA [None]
  - GLIOBLASTOMA [None]
  - INCOHERENT [None]
